FAERS Safety Report 4959602-6 (Version None)
Quarter: 2006Q1

REPORT INFORMATION
  Report Type: 
  Country: None (occurrence: None)
  Receive Date: 20060324
  Receipt Date: 20060302
  Transmission Date: 20060701
  Serious: Yes (Death)
  Sender: FDA-Public Use
  Company Number: US200603003727

PATIENT
  Age: 41 Year

DRUGS (1)
  1. ZYPREXA [Suspect]
     Indication: DEPRESSION
     Dates: start: 19970101

REACTIONS (2)
  - CONDITION AGGRAVATED [None]
  - DIABETES MELLITUS [None]
